FAERS Safety Report 13178810 (Version 1)
Quarter: 2017Q1

REPORT INFORMATION
  Report Type: Spontaneous
  Country: US (occurrence: US)
  Receive Date: 20170202
  Receipt Date: 20170202
  Transmission Date: 20170428
  Serious: Yes (Hospitalization)
  Sender: FDA-Public Use
  Company Number: None

PATIENT
  Age: 36 Year
  Sex: Female

DRUGS (14)
  1. VITAMIN D3 [Concomitant]
     Active Substance: CHOLECALCIFEROL
  2. DICYCLOMINE [Concomitant]
     Active Substance: DICYCLOMINE HYDROCHLORIDE
  3. ZOFRAN [Concomitant]
     Active Substance: ONDANSETRON HYDROCHLORIDE
  4. B2 [Concomitant]
  5. ALLEGRA [Concomitant]
     Active Substance: FEXOFENADINE HYDROCHLORIDE
  6. LAMSIL [Concomitant]
  7. COLLAGEN [Concomitant]
     Active Substance: COLLAGEN
  8. PREDNISONE. [Concomitant]
     Active Substance: PREDNISONE
  9. COLESTI [Concomitant]
  10. SIMPONI [Suspect]
     Active Substance: GOLIMUMAB
     Indication: COLITIS
     Dosage: Q 4 WEEKS
     Route: 058
     Dates: start: 20151110
  11. PROMETHAZINE [Concomitant]
     Active Substance: PROMETHAZINE\PROMETHAZINE HYDROCHLORIDE
  12. POTASSIUM [Concomitant]
     Active Substance: POTASSIUM
  13. CYMBALTA [Concomitant]
     Active Substance: DULOXETINE HYDROCHLORIDE
  14. LAMOTRIGINE. [Concomitant]
     Active Substance: LAMOTRIGINE

REACTIONS (1)
  - Cyst removal [None]

NARRATIVE: CASE EVENT DATE: 20170131
